FAERS Safety Report 16720879 (Version 1)
Quarter: 2019Q3

REPORT INFORMATION
  Report Type: Spontaneous
  Country: FR (occurrence: FR)
  Receive Date: 20190820
  Receipt Date: 20190820
  Transmission Date: 20191005
  Serious: Yes (Death)
  Sender: FDA-Public Use
  Company Number: FR-MYLANLABS-2019M1077736

PATIENT
  Age: 55 Year
  Sex: Male

DRUGS (3)
  1. TERCIAN                            /00759301/ [Suspect]
     Active Substance: CYAMEMAZINE
     Indication: PRODUCT USED FOR UNKNOWN INDICATION
     Dosage: 1125 MILLIGRAM
     Route: 048
     Dates: start: 20180525
  2. MIRTAZAPINE. [Suspect]
     Active Substance: MIRTAZAPINE
     Indication: PRODUCT USED FOR UNKNOWN INDICATION
     Dosage: 1200 MILLIGRAM
     Route: 048
     Dates: start: 20180525
  3. LORAZEPAM. [Suspect]
     Active Substance: LORAZEPAM
     Indication: PRODUCT USED FOR UNKNOWN INDICATION
     Dosage: 30 MILLIGRAM
     Route: 048
     Dates: start: 20180525

REACTIONS (4)
  - Poisoning deliberate [Fatal]
  - Cardiac arrest [Fatal]
  - Somnolence [Unknown]
  - Tachycardia [Unknown]

NARRATIVE: CASE EVENT DATE: 20180525
